FAERS Safety Report 16207362 (Version 1)
Quarter: 2019Q2

REPORT INFORMATION
  Report Type: Spontaneous
  Country: DE (occurrence: DE)
  Receive Date: 20190417
  Receipt Date: 20190417
  Transmission Date: 20190711
  Serious: Yes (Death)
  Sender: FDA-Public Use
  Company Number: DE-PFIZER INC-15852

PATIENT
  Age: 16 Year
  Sex: Female

DRUGS (7)
  1. CISPLATIN. [Suspect]
     Active Substance: CISPLATIN
     Indication: BRAIN CANCER METASTATIC
     Dosage: FREQ: FREQ UNK
     Route: 065
  2. CYTARABINE. [Suspect]
     Active Substance: CYTARABINE
     Indication: BRAIN CANCER METASTATIC
     Dosage: FREQ: FREQ UNK
     Route: 065
  3. ETOPOSIDE. [Suspect]
     Active Substance: ETOPOSIDE
     Indication: BRAIN CANCER METASTATIC
     Dosage: FREQ: FREQ UNK
     Route: 065
  4. CARBOPLATIN. [Suspect]
     Active Substance: CARBOPLATIN
     Indication: BRAIN CANCER METASTATIC
     Dosage: FREQ: FREQ UNK
     Route: 065
  5. CYCLOPHOSPHAMIDE. [Suspect]
     Active Substance: CYCLOPHOSPHAMIDE
     Indication: BRAIN CANCER METASTATIC
     Dosage: FREQ: FREQ UNK
     Route: 065
  6. VINCRISTINE SULFATE. [Suspect]
     Active Substance: VINCRISTINE SULFATE
     Indication: BRAIN CANCER METASTATIC
     Dosage: FREQ: FREQ UNK
     Route: 065
  7. METHOTREXATE SODIUM. [Suspect]
     Active Substance: METHOTREXATE SODIUM
     Indication: BRAIN CANCER METASTATIC
     Dosage: FREQ: FREQ UNK
     Route: 065

REACTIONS (1)
  - Glioma [Fatal]
